FAERS Safety Report 5832687-0 (Version None)
Quarter: 2008Q3

REPORT INFORMATION
  Report Type: 
  Country: None (occurrence: None)
  Receive Date: 20080804
  Receipt Date: 20080723
  Transmission Date: 20090109
  Serious: Yes (Other)
  Sender: FDA-Public Use
  Company Number: US-PFIZER INC-2008061298

PATIENT
  Sex: Female

DRUGS (5)
  1. ZYVOX [Suspect]
     Indication: SKIN INFECTION
  2. ULTRAM [Concomitant]
  3. NEXIUM [Concomitant]
  4. METHOTREXATE [Concomitant]
  5. ENALAPRIL MALEATE [Concomitant]

REACTIONS (2)
  - CELLULITIS [None]
  - WHITE BLOOD CELL COUNT DECREASED [None]
